FAERS Safety Report 19674677 (Version 1)
Quarter: 2021Q3

REPORT INFORMATION
  Report Type: Spontaneous
  Country: CN (occurrence: CN)
  Receive Date: 20210809
  Receipt Date: 20210809
  Transmission Date: 20211014
  Serious: Yes (Other)
  Sender: FDA-Public Use
  Company Number: CN-BAYER-2021-186208

PATIENT
  Age: 84 Year
  Sex: Female

DRUGS (1)
  1. AVELOX [Suspect]
     Active Substance: MOXIFLOXACIN HYDROCHLORIDE
     Indication: PNEUMONIA BACTERIAL
     Dosage: 400 MG, QD
     Route: 041
     Dates: start: 20210704, end: 20210715

REACTIONS (6)
  - Wheezing [Recovering/Resolving]
  - Respiratory failure [Recovering/Resolving]
  - Drug hypersensitivity [Recovering/Resolving]
  - Rash erythematous [Recovering/Resolving]
  - Livedo reticularis [Recovering/Resolving]
  - Dyspnoea [Recovering/Resolving]

NARRATIVE: CASE EVENT DATE: 20210715
